FAERS Safety Report 4823606-4 (Version None)
Quarter: 2005Q4

REPORT INFORMATION
  Report Type: 
  Country: None (occurrence: None)
  Receive Date: 20051109
  Receipt Date: 20051031
  Transmission Date: 20060501
  Serious: Yes (Hospitalization)
  Sender: FDA-Public Use
  Company Number: US-JNJFOC-20051100228

PATIENT
  Age: 5 Day
  Sex: Male
  Weight: 3 kg

DRUGS (2)
  1. ACETAMINOPHEN [Suspect]
     Route: 048
  2. ACETAMINOPHEN [Suspect]
     Indication: DRUG USE FOR UNKNOWN INDICATION
     Dosage: 2880 MG ORAL; ^}24 HR {= 1 WEEK^
     Route: 048

REACTIONS (9)
  - ACCIDENTAL OVERDOSE [None]
  - ACIDOSIS [None]
  - COAGULOPATHY [None]
  - CONVULSION NEONATAL [None]
  - HEPATIC FUNCTION ABNORMAL [None]
  - HYPOGLYCAEMIA NEONATAL [None]
  - INCORRECT DRUG DOSAGE FORM ADMINISTERED [None]
  - PANCYTOPENIA [None]
  - RENAL IMPAIRMENT NEONATAL [None]
